FAERS Safety Report 6041945-9 (Version None)
Quarter: 2009Q1

REPORT INFORMATION
  Report Type: 
  Country: None (occurrence: None)
  Receive Date: 20090116
  Receipt Date: 20090112
  Transmission Date: 20090719
  Serious: Yes (Other)
  Sender: FDA-Public Use
  Company Number: BR-ROCHE-608007

PATIENT
  Sex: Male
  Weight: 55 kg

DRUGS (1)
  1. ROACUTAN [Suspect]
     Indication: ACNE
     Route: 048
     Dates: start: 20081208

REACTIONS (2)
  - BLOOD CREATININE DECREASED [None]
  - BLOOD UREA INCREASED [None]
